FAERS Safety Report 22294067 (Version 1)
Quarter: 2023Q2

REPORT INFORMATION
  Report Type: Spontaneous
  Country: CO (occurrence: CO)
  Receive Date: 20230508
  Receipt Date: 20230508
  Transmission Date: 20230721
  Serious: No
  Sender: FDA-Public Use
  Company Number: CO-PFIZER INC-PV202300076935

PATIENT
  Sex: Male

DRUGS (1)
  1. GENOTROPIN [Suspect]
     Active Substance: SOMATROPIN
     Dosage: 2.4 MG
     Route: 058

REACTIONS (4)
  - Poor quality device used [Unknown]
  - Device physical property issue [Unknown]
  - Device mechanical issue [Unknown]
  - Device use issue [Unknown]
